FAERS Safety Report 7356455-6 (Version None)
Quarter: 2011Q1

REPORT INFORMATION
  Report Type: 
  Country: None (occurrence: None)
  Receive Date: 20110316
  Receipt Date: 20110215
  Transmission Date: 20110831
  Serious: No
  Sender: FDA-Public Use
  Company Number: US-BAYER-2011-022022

PATIENT
  Weight: 76 kg

DRUGS (12)
  1. ASPIRIN [Concomitant]
     Dosage: 2 DF, UNK
     Route: 048
  2. HORMONES NOS [Concomitant]
  3. NIASPAN [Concomitant]
  4. ZETIA [Concomitant]
  5. ULTRIM [Concomitant]
     Dosage: 3 DF, TID
  6. GLUCOSAMINE [Concomitant]
     Dosage: 1 DF, BID
     Dates: end: 20101001
  7. AMLODIPINE [Concomitant]
  8. ALEVE (CAPLET) [Suspect]
     Dosage: 220 MG, TID
     Route: 048
     Dates: end: 20101001
  9. VICODIN [Concomitant]
     Dosage: 1 DF, BID
  10. METOPROLOL SUCCINATE [Concomitant]
  11. LIPITOR [Concomitant]
  12. ASPIRIN [Suspect]
     Dosage: 2 DF, PRN
     Route: 048

REACTIONS (3)
  - GASTROOESOPHAGEAL REFLUX DISEASE [None]
  - INJURY [None]
  - NO ADVERSE EVENT [None]
